FAERS Safety Report 10561769 (Version 5)
Quarter: 2015Q2

REPORT INFORMATION
  Report Type: Report from Study
  Country: US (occurrence: US)
  Receive Date: 20141103
  Receipt Date: 20150608
  Transmission Date: 20150821
  Serious: Yes (Hospitalization, Other)
  Sender: FDA-Public Use
  Company Number: US-009507513-1411USA000023

PATIENT
  Age: 57 Year
  Sex: Male
  Weight: 119.73 kg

DRUGS (5)
  1. HEXADROL [Suspect]
     Active Substance: DEXAMETHASONE
     Dosage: 40 MG, QW
     Route: 048
     Dates: start: 20100518, end: 20100827
  2. VELCADE [Suspect]
     Active Substance: BORTEZOMIB
     Indication: PLASMA CELL MYELOMA
     Dosage: 3.2 MG, CYCLICAL, ON DAYS 1,4,8,11 Q21 DAYS
     Route: 042
     Dates: start: 20100204, end: 20140617
  3. VELCADE [Suspect]
     Active Substance: BORTEZOMIB
     Dosage: 1.3 MG/M2, CYCLICAL, ON DAYS 1,4,8,11 Q 21 DAYS, DURATION APPROXIMATELY 2.5 MONTHS
     Route: 042
     Dates: start: 20100518, end: 20100730
  4. HEXADROL [Suspect]
     Active Substance: DEXAMETHASONE
     Indication: PLASMA CELL MYELOMA
     Dosage: 40 MG, QW
     Route: 048
     Dates: start: 20100204, end: 20140617
  5. DOXIL [Suspect]
     Active Substance: DOXORUBICIN HYDROCHLORIDE
     Indication: PLASMA CELL MYELOMA
     Dosage: 30 MG/M2, CYCLICAL, ON DAY 4, DURATION: APPROX. 2 MONTHS
     Route: 042
     Dates: start: 20100521, end: 20100723

REACTIONS (2)
  - Pulmonary toxicity [Unknown]
  - Pneumonia [Not Recovered/Not Resolved]

NARRATIVE: CASE EVENT DATE: 20100612
